FAERS Safety Report 5749200-9 (Version None)
Quarter: 2008Q2

REPORT INFORMATION
  Report Type: 
  Country: None (occurrence: None)
  Receive Date: 20080521
  Receipt Date: 20080521
  Transmission Date: 20081010
  Serious: Yes (Hospitalization)
  Sender: FDA-Public Use
  Company Number: None

PATIENT
  Sex: Male
  Weight: 45 kg

DRUGS (2)
  1. SINGULAIR [Suspect]
     Indication: ASTHMA
     Dosage: 5 MG QDAY PO
     Route: 048
     Dates: start: 20080315, end: 20080518
  2. SINGULAIR [Suspect]
     Indication: SEASONAL ALLERGY
     Dosage: 5 MG QDAY PO
     Route: 048
     Dates: start: 20080315, end: 20080518

REACTIONS (4)
  - ANGER [None]
  - HALLUCINATION, AUDITORY [None]
  - MOOD SWINGS [None]
  - SUICIDAL IDEATION [None]
